FAERS Safety Report 8273659-9 (Version None)
Quarter: 2012Q2

REPORT INFORMATION
  Report Type: 
  Country: None (occurrence: None)
  Receive Date: 20120411
  Receipt Date: 20120313
  Transmission Date: 20120825
  Serious: No
  Sender: FDA-Public Use
  Company Number: US-TEVA-328185USA

PATIENT
  Sex: Female
  Weight: 88.53 kg

DRUGS (4)
  1. NUVIGIL [Suspect]
     Indication: HYPERSOMNIA
     Dosage: 150 MILLIGRAM;
     Route: 048
     Dates: start: 20120201
  2. ATENOLOL [Concomitant]
     Indication: TACHYCARDIA
     Dosage: 50 MILLIGRAM;
     Route: 048
     Dates: end: 20120101
  3. GABAPENTIN [Concomitant]
     Indication: NEURALGIA
     Dosage: 300 MILLIGRAM;
     Route: 048
     Dates: start: 20100801
  4. OMEPRAZOLE [Concomitant]
     Indication: GASTROOESOPHAGEAL REFLUX DISEASE
     Route: 048

REACTIONS (3)
  - AGITATION [None]
  - LOGORRHOEA [None]
  - STOMATITIS [None]
